FAERS Safety Report 7017415-8 (Version None)
Quarter: 2010Q3

REPORT INFORMATION
  Report Type: 
  Country: None (occurrence: None)
  Receive Date: 20100909
  Receipt Date: 20100709
  Transmission Date: 20110219
  Serious: No
  Sender: FDA-Public Use
  Company Number: 2010SP038279

PATIENT
  Age: 42 Year
  Sex: Female

DRUGS (3)
  1. SAPHRIS [Suspect]
     Indication: BIPOLAR DISORDER
     Dosage: 10 MG
  2. METHADONE [Concomitant]
  3. * [Concomitant]

REACTIONS (1)
  - OEDEMA PERIPHERAL [None]
